FAERS Safety Report 5098671-2 (Version None)
Quarter: 2006Q3

REPORT INFORMATION
  Report Type: 
  Country: None (occurrence: None)
  Receive Date: 20060905
  Receipt Date: 20060821
  Transmission Date: 20061208
  Serious: Yes (Other)
  Sender: FDA-Public Use
  Company Number: 2006S1006742

PATIENT
  Age: 44 Year
  Sex: Female
  Weight: 61.2356 kg

DRUGS (7)
  1. FENTANYL TRANSDERMAL SYSTEM [Suspect]
     Indication: NEUROPATHY PERIPHERAL
     Dosage: 25 UG/HR;Q3D;TDER
     Route: 062
     Dates: start: 20050101
  2. FENTANYL TRANSDERMAL SYSTEM [Suspect]
     Indication: PAIN
     Dosage: 25 UG/HR;Q3D;TDER
     Route: 062
     Dates: start: 20050101
  3. FENTANYL TRANSDERMAL SYSTEM [Suspect]
     Indication: NEUROPATHY PERIPHERAL
     Dosage: 100 UG/HR;Q3D;TDER
     Route: 062
     Dates: start: 20050101
  4. FENTANYL TRANSDERMAL SYSTEM [Suspect]
     Indication: PAIN
     Dosage: 100 UG/HR;Q3D;TDER
     Route: 062
     Dates: start: 20050101
  5. PAROXETINE HYDROCHLORIDE [Concomitant]
  6. GABAPENTIN [Concomitant]
  7. HYDROCODONE BITARTRATE AND AETAMINOPHEN [Concomitant]

REACTIONS (2)
  - DRUG WITHDRAWAL SYNDROME [None]
  - INCOHERENT [None]
